FAERS Safety Report 11512119 (Version 1)
Quarter: 2015Q3

REPORT INFORMATION
  Report Type: Spontaneous
  Country: US (occurrence: US)
  Receive Date: 20150916
  Receipt Date: 20150916
  Transmission Date: 20151125
  Serious: Yes (Hospitalization, Other)
  Sender: FDA-Public Use
  Company Number: US-AMGEN-USASP2015094018

PATIENT

DRUGS (1)
  1. NPLATE [Suspect]
     Active Substance: ROMIPLOSTIM
     Indication: PRODUCT USED FOR UNKNOWN INDICATION
     Dosage: 3 MUG/KG, UNK
     Route: 065

REACTIONS (3)
  - Immune thrombocytopenic purpura [Not Recovered/Not Resolved]
  - Platelet count abnormal [Unknown]
  - Hospitalisation [Unknown]
